FAERS Safety Report 7471296-7 (Version None)
Quarter: 2011Q2

REPORT INFORMATION
  Report Type: 
  Country: None (occurrence: None)
  Receive Date: 20110510
  Receipt Date: 20110307
  Transmission Date: 20111010
  Serious: No
  Sender: FDA-Public Use
  Company Number: US-BAUSCH-2011BL001390

PATIENT
  Age: 53 Year
  Sex: Female

DRUGS (2)
  1. FLUOCINOLONE ACETONIDE [Suspect]
     Indication: CHOROIDITIS
     Route: 031
     Dates: start: 20051024, end: 20110301
  2. FLUOCINOLONE ACETONIDE [Suspect]
     Route: 031
     Dates: start: 20051024, end: 20110301

REACTIONS (2)
  - VITREOUS FLOATERS [None]
  - DEVICE BREAKAGE [None]
